FAERS Safety Report 7679718-3 (Version None)
Quarter: 2011Q3

REPORT INFORMATION
  Report Type: 
  Country: None (occurrence: None)
  Receive Date: 20110812
  Receipt Date: 20110801
  Transmission Date: 20111222
  Serious: Yes (Hospitalization)
  Sender: FDA-Public Use
  Company Number: US-JNJFOC-20110801269

PATIENT
  Age: 33 Year
  Sex: Female
  Weight: 48.6 kg

DRUGS (2)
  1. EXTRA STRENGTH TYLENOL PM [Suspect]
     Indication: PRODUCT USED FOR UNKNOWN INDICATION
     Route: 048
     Dates: start: 20110719
  2. DOXYLAMINE SUCCINATE [Suspect]
     Indication: PRODUCT USED FOR UNKNOWN INDICATION

REACTIONS (5)
  - INTENTIONAL OVERDOSE [None]
  - HEPATIC ENZYME INCREASED [None]
  - VOMITING [None]
  - NAUSEA [None]
  - INTENTIONAL SELF-INJURY [None]
